FAERS Safety Report 7012876-2 (Version None)
Quarter: 2010Q3

REPORT INFORMATION
  Report Type: 
  Country: None (occurrence: None)
  Receive Date: 20100924
  Receipt Date: 20100913
  Transmission Date: 20110219
  Serious: Yes (Other)
  Sender: FDA-Public Use
  Company Number: PHHY2010JP56111

PATIENT
  Age: 60 Year
  Sex: Male

DRUGS (2)
  1. NEORAL [Suspect]
     Indication: NEPHROTIC SYNDROME
     Route: 048
  2. STEROIDS NOS [Suspect]
     Dosage: UNK

REACTIONS (1)
  - PNEUMONIA [None]
